FAERS Safety Report 25404206 (Version 1)
Quarter: 2025Q2

REPORT INFORMATION
  Report Type: Report from Study
  Country: JP (occurrence: JP)
  Receive Date: 20250606
  Receipt Date: 20250606
  Transmission Date: 20250717
  Serious: Yes (Other)
  Sender: ALEXION PHARMACEUTICALS
  Company Number: JP-ASTRAZENECA-202505GLO028342JP

PATIENT
  Age: 78 Year

DRUGS (2)
  1. OSIMERTINIB [Suspect]
     Active Substance: OSIMERTINIB
     Indication: Adenocarcinoma
     Route: 065
  2. OSIMERTINIB [Suspect]
     Active Substance: OSIMERTINIB
     Route: 065

REACTIONS (1)
  - Cardiac dysfunction [Recovered/Resolved]
